FAERS Safety Report 6892881-7 (Version None)
Quarter: 2010Q3

REPORT INFORMATION
  Report Type: 
  Country: None (occurrence: None)
  Receive Date: 20100731
  Receipt Date: 20081104
  Transmission Date: 20110219
  Serious: No
  Sender: FDA-Public Use
  Company Number: US-PFIZER INC-2008086612

PATIENT
  Sex: Female

DRUGS (1)
  1. NEURONTIN [Suspect]
     Dates: start: 20080101, end: 20080101

REACTIONS (5)
  - ABDOMINAL DISTENSION [None]
  - ABDOMINAL PAIN UPPER [None]
  - HYPERPHAGIA [None]
  - OEDEMA PERIPHERAL [None]
  - WEIGHT INCREASED [None]
